FAERS Safety Report 5143850-9 (Version None)
Quarter: 2006Q4

REPORT INFORMATION
  Report Type: 
  Country: None (occurrence: None)
  Receive Date: 20061102
  Receipt Date: 20061102
  Transmission Date: 20070319
  Serious: Yes (Hospitalization)
  Sender: FDA-Public Use
  Company Number: None

PATIENT
  Age: 69 Year
  Sex: Female
  Weight: 69.8539 kg

DRUGS (2)
  1. THALIDOMIDE 100MG CAPS [Suspect]
     Indication: MULTIPLE MYELOMA
     Dosage: 200 MG PO QHS
     Route: 048
     Dates: start: 20060801, end: 20061010
  2. LYRICA [Suspect]
     Indication: NEUROPATHY
     Dosage: 50 MG PO TID
     Route: 048
     Dates: start: 20061001, end: 20061010

REACTIONS (6)
  - APHASIA [None]
  - ASTHENIA [None]
  - CONFUSIONAL STATE [None]
  - DIZZINESS [None]
  - ECHOLALIA [None]
  - TREMOR [None]
